FAERS Safety Report 10506642 (Version 1)
Quarter: 2014Q3

REPORT INFORMATION
  Report Type: Spontaneous
  Country: US (occurrence: None)
  Receive Date: 20140915
  Receipt Date: 20140915
  Transmission Date: 20150326
  Serious: Yes (Other)
  Sender: FDA-Public Use
  Company Number: 2013-US-004271

PATIENT
  Age: 29 Year
  Sex: Female
  Weight: 75.7 kg

DRUGS (6)
  1. XYREM [Suspect]
     Active Substance: SODIUM OXYBATE
     Indication: HYPERSOMNIA
     Route: 048
     Dates: start: 201306, end: 2013
  2. METFORMIN [Concomitant]
     Active Substance: METFORMIN HYDROCHLORIDE
  3. MULTIVITAMINS (ASCORBIC ACID, ERGOCALCIFEROL, FOLIC ACID,NICOTINAMIDE, PANTHENOL, RETINOL, RIBOFLAVIN, THIAMINE [Concomitant]
  4. PROVIGIL [Suspect]
     Active Substance: MODAFINIL
     Indication: PRODUCT USED FOR UNKNOWN INDICATION
     Route: 048
     Dates: start: 201306, end: 2013
  5. XYREM [Suspect]
     Active Substance: SODIUM OXYBATE
     Indication: NARCOLEPSY
     Route: 048
     Dates: start: 201306, end: 2013
  6. CONTRACEPTIVES (ORAL CONTRACEPTIVE) [Concomitant]

REACTIONS (4)
  - Jaw disorder [None]
  - Gingival pain [None]
  - Condition aggravated [None]
  - Sleep apnoea syndrome [None]

NARRATIVE: CASE EVENT DATE: 2013
